FAERS Safety Report 6480031-0 (Version None)
Quarter: 2009Q4

REPORT INFORMATION
  Report Type: 
  Country: None (occurrence: None)
  Receive Date: 20091208
  Receipt Date: 20091105
  Transmission Date: 20100525
  Serious: No
  Sender: FDA-Public Use
  Company Number: DE-ROCHE-672848

PATIENT
  Age: 55 Year
  Sex: Male
  Weight: 86 kg

DRUGS (2)
  1. TAMIFLU [Suspect]
     Indication: DRUG USE FOR UNKNOWN INDICATION
     Dosage: TAKEN IN THE MORNING; OVERDOSE
     Route: 048
     Dates: start: 20091105
  2. TAMIFLU [Suspect]
     Route: 048
     Dates: start: 20091106, end: 20091109

REACTIONS (2)
  - NO ADVERSE EVENT [None]
  - OVERDOSE [None]
